FAERS Safety Report 6461969-7 (Version None)
Quarter: 2009Q4

REPORT INFORMATION
  Report Type: 
  Country: None (occurrence: None)
  Receive Date: 20091130
  Receipt Date: 20090805
  Transmission Date: 20100525
  Serious: Yes (Hospitalization)
  Sender: FDA-Public Use
  Company Number: FR-SANOFI-AVENTIS-A02200901741

PATIENT
  Age: 73 Year
  Sex: Female
  Weight: 59 kg

DRUGS (6)
  1. CLOPIDOGREL BISULFATE [Suspect]
     Indication: CORONARY ARTERIAL STENT INSERTION
     Dosage: UNIT DOSE: 75 MG
     Route: 048
     Dates: start: 20090526, end: 20090703
  2. FORTZAAR [Suspect]
     Indication: HYPERTENSION
     Route: 048
     Dates: start: 20090528, end: 20090703
  3. DILTIAZEM HCL [Suspect]
     Indication: DRUG USE FOR UNKNOWN INDICATION
     Dosage: UNIT DOSE: 90 MG
     Route: 048
     Dates: start: 20090528, end: 20090715
  4. KARDEGIC /FRA/ [Concomitant]
     Indication: CORONARY ARTERIAL STENT INSERTION
     Dosage: UNIT DOSE: 160 MG
     Route: 048
     Dates: start: 20090526
  5. TAHOR [Concomitant]
     Indication: DRUG USE FOR UNKNOWN INDICATION
     Dosage: UNIT DOSE: 80 MG
     Route: 048
     Dates: start: 20090526
  6. NITROGLYCERIN [Concomitant]
     Indication: DRUG USE FOR UNKNOWN INDICATION
     Route: 048

REACTIONS (4)
  - CRYSTAL ARTHROPATHY [None]
  - JOINT SWELLING [None]
  - OEDEMA PERIPHERAL [None]
  - PAIN IN EXTREMITY [None]
